FAERS Safety Report 6993656-0 (Version None)
Quarter: 2010Q3

REPORT INFORMATION
  Report Type: 
  Country: None (occurrence: None)
  Receive Date: 20100917
  Receipt Date: 20100412
  Transmission Date: 20110219
  Serious: Yes (Hospitalization, Other)
  Sender: FDA-Public Use
  Company Number: US-ASTRAZENECA-2007UW01965

PATIENT
  Age: 11794 Day
  Sex: Female
  Weight: 79.4 kg

DRUGS (20)
  1. SEROQUEL [Suspect]
     Indication: BIPOLAR DISORDER
     Route: 048
     Dates: start: 20000613, end: 20050223
  2. SEROQUEL [Suspect]
     Route: 048
     Dates: start: 20020101, end: 20050223
  3. ZYPREXA [Concomitant]
     Dosage: 2.5MG - 5MG
     Dates: start: 20050223, end: 20050318
  4. ZYPREXA [Concomitant]
     Route: 048
     Dates: start: 20050308
  5. AVANDAMET [Concomitant]
     Dates: start: 20030223
  6. METFORMIN [Concomitant]
     Route: 048
     Dates: start: 20050301
  7. AMARYL [Concomitant]
     Dates: start: 20050308
  8. AMARYL [Concomitant]
     Dates: start: 20050511
  9. LANTUS [Concomitant]
     Dosage: 100 UNITS, INSULIN, 10ML
     Dates: start: 20060707
  10. RISPERDAL [Concomitant]
     Dates: start: 20021120, end: 20030611
  11. RISPERDAL [Concomitant]
     Dates: start: 20021120
  12. PAXIL [Concomitant]
     Dates: start: 20060911
  13. SYNTHROID [Concomitant]
     Dates: start: 20060206
  14. VALIUM [Concomitant]
     Dosage: 20 MG, TWO TABS
     Route: 048
     Dates: start: 20030909
  15. VALIUM [Concomitant]
     Dosage: 5MG, TWO TABS TWO TIMES DAY,PRN
     Route: 048
     Dates: start: 20060227
  16. CRESTOR [Concomitant]
     Dates: start: 20060206
  17. PROZAC [Concomitant]
     Route: 048
     Dates: start: 19990811
  18. DEPAKOTE [Concomitant]
     Dosage: 500MG, FOUR AT NIGHT
     Dates: start: 20020925
  19. AMITRIPTYLINE HCL [Concomitant]
     Route: 048
     Dates: start: 19990429
  20. PROMETHAZINE [Concomitant]
     Dosage: 25MG, EVERY 4 TO 6 HRS
     Dates: start: 20010612

REACTIONS (9)
  - DIABETES MELLITUS [None]
  - DIABETES MELLITUS INADEQUATE CONTROL [None]
  - DIABETIC KETOACIDOSIS [None]
  - HYPERGLYCAEMIA [None]
  - INTERVERTEBRAL DISC PROTRUSION [None]
  - SEDATION [None]
  - TYPE 1 DIABETES MELLITUS [None]
  - TYPE 2 DIABETES MELLITUS [None]
  - VISUAL IMPAIRMENT [None]
